FAERS Safety Report 14860099 (Version 1)
Quarter: 2018Q2

REPORT INFORMATION
  Report Type: Spontaneous
  Country: DE (occurrence: DE)
  Receive Date: 20180508
  Receipt Date: 20180508
  Transmission Date: 20180711
  Serious: Yes (Other)
  Sender: FDA-Public Use
  Company Number: DE-PFIZER INC-2018181972

PATIENT

DRUGS (1)
  1. SIROLIMUS. [Suspect]
     Active Substance: SIROLIMUS

REACTIONS (1)
  - Renal artery stenosis [Unknown]
